FAERS Safety Report 6568404-9 (Version None)
Quarter: 2010Q1

REPORT INFORMATION
  Report Type: 
  Country: None (occurrence: None)
  Receive Date: 20100128
  Receipt Date: 20100114
  Transmission Date: 20100710
  Serious: Yes (Other)
  Sender: FDA-Public Use
  Company Number: 004502

PATIENT
  Sex: Female
  Weight: 88.4 kg

DRUGS (6)
  1. KEPPRA [Suspect]
     Indication: CONVULSION
     Dosage: 750 MG QD ORAL, 375 MG QD ORAL, 1500 MG QD ORAL
     Route: 048
     Dates: start: 20091221, end: 20091221
  2. KEPPRA [Suspect]
     Indication: CONVULSION
     Dosage: 750 MG QD ORAL, 375 MG QD ORAL, 1500 MG QD ORAL
     Route: 048
     Dates: start: 20090122, end: 20091223
  3. KEPPRA [Suspect]
     Indication: CONVULSION
     Dosage: 750 MG QD ORAL, 375 MG QD ORAL, 1500 MG QD ORAL
     Route: 048
     Dates: start: 20091222, end: 20091223
  4. KEPPRA [Suspect]
     Indication: CONVULSION
     Dosage: 750 MG QD ORAL, 375 MG QD ORAL, 1500 MG QD ORAL
     Route: 048
     Dates: start: 20091201
  5. LORTAB [Concomitant]
  6. SULFAMETHIZOL [Concomitant]

REACTIONS (6)
  - DIZZINESS [None]
  - DRUG DOSE OMISSION [None]
  - INSOMNIA [None]
  - NERVOUSNESS [None]
  - VISION BLURRED [None]
  - WEIGHT DECREASED [None]
